FAERS Safety Report 25700153 (Version 2)
Quarter: 2025Q4

REPORT INFORMATION
  Report Type: Report from Study
  Country: GB (occurrence: GB)
  Receive Date: 20250819
  Receipt Date: 20251105
  Transmission Date: 20260118
  Serious: Yes (Hospitalization, Disabling)
  Sender: ABBVIE
  Company Number: GB-ABBVIE-6417558

PATIENT
  Age: 30 Year
  Sex: Female

DRUGS (1)
  1. HUMIRA [Suspect]
     Active Substance: ADALIMUMAB
     Indication: Crohn^s disease
     Dosage: DOSE FORM: SOLUTION FOR INJECTION IN PRE-FILLED SYRINGE?2 PRE-FILLED  DISPOSABLE INJECTION
     Route: 058

REACTIONS (10)
  - Thrombosis [Unknown]
  - Blindness [Unknown]
  - Dehydration [Unknown]
  - Adverse reaction [Unknown]
  - Pancreatitis [Unknown]
  - Diabetes mellitus [Unknown]
  - Acute kidney injury [Unknown]
  - Haemoglobin decreased [Unknown]
  - Post-traumatic stress disorder [Unknown]
  - Reaction to preservatives [Unknown]

NARRATIVE: CASE EVENT DATE: 20241201
